FAERS Safety Report 24080254 (Version 1)
Quarter: 2024Q3

REPORT INFORMATION
  Report Type: Report from Study
  Country: FR (occurrence: FR)
  Receive Date: 20240711
  Receipt Date: 20240711
  Transmission Date: 20241017
  Serious: Yes (Other)
  Sender: NOVARTIS
  Company Number: FR-002147023-NVSC2024FR102048

PATIENT
  Sex: Male
  Weight: 72 kg

DRUGS (4)
  1. PLUVICTO [Suspect]
     Active Substance: LUTETIUM LU-177 VIPIVOTIDE TETRAXETAN
     Indication: Prostate cancer
     Dosage: 7746 MBQ, CYCLIC (1ST CYCLE)
     Route: 042
     Dates: start: 20231117, end: 20231117
  2. PLUVICTO [Suspect]
     Active Substance: LUTETIUM LU-177 VIPIVOTIDE TETRAXETAN
     Dosage: 7642 MBQ, ONCE/SINGLE (2ND CYCLE)
     Route: 042
     Dates: start: 20240105, end: 20240105
  3. PLUVICTO [Suspect]
     Active Substance: LUTETIUM LU-177 VIPIVOTIDE TETRAXETAN
     Dosage: 7463 MBQ, ONCE/SINGLE (3RD CYCLE)
     Route: 042
     Dates: start: 20240322, end: 20240322
  4. PLUVICTO [Suspect]
     Active Substance: LUTETIUM LU-177 VIPIVOTIDE TETRAXETAN
     Dosage: 5936 MBQ, ONCE/SINGLE (4TH CYCLE)
     Route: 042
     Dates: start: 20240614, end: 20240614

REACTIONS (3)
  - Haemoglobin decreased [Unknown]
  - Haematotoxicity [Recovering/Resolving]
  - Creatinine renal clearance decreased [Unknown]

NARRATIVE: CASE EVENT DATE: 20240701
